FAERS Safety Report 20847502 (Version 3)
Quarter: 2022Q3

REPORT INFORMATION
  Report Type: Report from Study
  Country: NZ (occurrence: NZ)
  Receive Date: 20220519
  Receipt Date: 20220801
  Transmission Date: 20221027
  Serious: Yes (Other)
  Sender: FDA-Public Use
  Company Number: NZ-JNJFOC-20220526560

PATIENT
  Age: 34 Year
  Sex: Female

DRUGS (1)
  1. REMICADE [Suspect]
     Active Substance: INFLIXIMAB
     Indication: Crohn^s disease
     Route: 041
     Dates: start: 202108

REACTIONS (3)
  - Cytomegalovirus infection [Recovered/Resolved]
  - Crohn^s disease [Unknown]
  - Treatment failure [Unknown]

NARRATIVE: CASE EVENT DATE: 20210801
